FAERS Safety Report 5515927-7 (Version None)
Quarter: 2007Q4

REPORT INFORMATION
  Report Type: 
  Country: None (occurrence: None)
  Receive Date: 20071114
  Receipt Date: 20071108
  Transmission Date: 20080405
  Serious: Yes (Death, Life-Threatening, Other)
  Sender: FDA-Public Use
  Company Number: US-BRISTOL-MYERS SQUIBB COMPANY-13978002

PATIENT
  Sex: Female

DRUGS (1)
  1. TEQUIN [Suspect]

REACTIONS (8)
  - DEATH [None]
  - DIABETES INSIPIDUS [None]
  - DIABETES MELLITUS [None]
  - INJURY [None]
  - MULTI-ORGAN FAILURE [None]
  - MUSCULOSKELETAL STIFFNESS [None]
  - PANCREATITIS NECROTISING [None]
  - RENAL FAILURE [None]
